FAERS Safety Report 11641618 (Version 2)
Quarter: 2015Q4

REPORT INFORMATION
  Report Type: Spontaneous
  Country: JP (occurrence: JP)
  Receive Date: 20151019
  Receipt Date: 20151124
  Transmission Date: 20160304
  Serious: Yes (Death)
  Sender: FDA-Public Use
  Company Number: JP-BAYER-2015-438512

PATIENT
  Age: 79 Year
  Sex: Male

DRUGS (2)
  1. HYDREA [Concomitant]
     Active Substance: HYDROXYUREA
     Dosage: UNK
     Route: 048
     Dates: start: 2008
  2. BAYASPIRIN [Suspect]
     Active Substance: ASPIRIN
     Indication: ESSENTIAL THROMBOCYTHAEMIA
     Dosage: UNK
     Route: 048
     Dates: start: 20081112, end: 20150121

REACTIONS (6)
  - Hepatic function abnormal [Fatal]
  - Decreased appetite [None]
  - Hepatosplenomegaly [Fatal]
  - Acute monocytic leukaemia [Fatal]
  - Malaise [None]
  - White blood cell count increased [Fatal]

NARRATIVE: CASE EVENT DATE: 20150121
